FAERS Safety Report 12731370 (Version 2)
Quarter: 2019Q1

REPORT INFORMATION
  Report Type: Spontaneous
  Country: US (occurrence: US)
  Receive Date: 20160912
  Receipt Date: 20190321
  Transmission Date: 20190417
  Serious: No
  Sender: FDA-Public Use
  Company Number: US-ASTRAZENECA-2016SE91306

PATIENT
  Age: 15272 Day
  Sex: Female
  Weight: 88.9 kg

DRUGS (26)
  1. BYETTA [Suspect]
     Active Substance: EXENATIDE
     Indication: INSULIN RESISTANCE
     Route: 058
     Dates: start: 2017
  2. BYETTA [Suspect]
     Active Substance: EXENATIDE
     Indication: BLOOD GLUCOSE INCREASED
     Route: 058
     Dates: end: 201808
  3. PROPRANOLOL [Concomitant]
     Active Substance: PROPRANOLOL HYDROCHLORIDE
     Dates: start: 2018
  4. TYLENOL [Concomitant]
     Active Substance: ACETAMINOPHEN
     Indication: HEADACHE
  5. BYETTA [Suspect]
     Active Substance: EXENATIDE
     Indication: OBESITY
     Route: 058
     Dates: start: 201607
  6. NAPROXEN. [Concomitant]
     Active Substance: NAPROXEN
     Indication: HEADACHE
  7. BYETTA [Suspect]
     Active Substance: EXENATIDE
     Indication: INSULIN RESISTANCE
     Route: 058
     Dates: start: 201607
  8. BYETTA [Suspect]
     Active Substance: EXENATIDE
     Indication: BLOOD GLUCOSE INCREASED
     Route: 058
     Dates: start: 2017
  9. BYETTA [Suspect]
     Active Substance: EXENATIDE
     Indication: OBESITY
     Route: 058
     Dates: end: 201808
  10. IBUPROFEN. [Concomitant]
     Active Substance: IBUPROFEN
     Indication: HEADACHE
     Dosage: IF NEEDED
  11. BYETTA [Suspect]
     Active Substance: EXENATIDE
     Indication: BLOOD GLUCOSE INCREASED
     Route: 058
     Dates: start: 201607
  12. BYETTA [Suspect]
     Active Substance: EXENATIDE
     Indication: OBESITY
     Route: 058
     Dates: start: 2017
  13. METFORMIN [Concomitant]
     Active Substance: METFORMIN HYDROCHLORIDE
  14. IMITREX [Concomitant]
     Active Substance: SUMATRIPTAN SUCCINATE
  15. ZOFRAN [Concomitant]
     Active Substance: ONDANSETRON HYDROCHLORIDE
     Dosage: BID
  16. ZOFRAN [Concomitant]
     Active Substance: ONDANSETRON HYDROCHLORIDE
     Dosage: 3 PILLS OF ZOFRAN 4 MG IN A WEEK
  17. BYETTA [Suspect]
     Active Substance: EXENATIDE
     Indication: INSULIN RESISTANCE
     Route: 058
     Dates: start: 2017
  18. BYETTA [Suspect]
     Active Substance: EXENATIDE
     Indication: OBESITY
     Route: 058
     Dates: start: 2017
  19. BYETTA [Suspect]
     Active Substance: EXENATIDE
     Indication: BLOOD GLUCOSE INCREASED
     Route: 058
     Dates: start: 2017
  20. BYETTA [Suspect]
     Active Substance: EXENATIDE
     Indication: INSULIN RESISTANCE
     Route: 058
     Dates: end: 201808
  21. BYDUREON BCISE [Suspect]
     Active Substance: EXENATIDE
     Indication: INSULIN RESISTANCE
     Route: 058
     Dates: start: 201808
  22. IMITREX [Concomitant]
     Active Substance: SUMATRIPTAN SUCCINATE
  23. BYDUREON BCISE [Suspect]
     Active Substance: EXENATIDE
     Indication: OBESITY
     Route: 058
     Dates: start: 201808
  24. DEXILANT [Concomitant]
     Active Substance: DEXLANSOPRAZOLE
     Route: 048
  25. IMITREX [Concomitant]
     Active Substance: SUMATRIPTAN SUCCINATE
     Dosage: 50 MG DAILY, 50 MG ONE MORE TIME IN 1.5 HOUR IF THE HEADACHE DOES NOT GO AWAY
  26. ONDANSETRON [Concomitant]
     Active Substance: ONDANSETRON
     Dosage: 4 MG 3 PILLS IN A WEEK IF NEEDED
     Route: 048

REACTIONS (10)
  - Injection site pruritus [Unknown]
  - Product compounding quality issue [Unknown]
  - Hunger [Unknown]
  - Incorrect dose administered by device [Unknown]
  - Angina pectoris [Unknown]
  - Migraine [Recovering/Resolving]
  - Nausea [Unknown]
  - Hypersomnia [Unknown]
  - Injection site extravasation [Unknown]
  - Product dose omission [Unknown]

NARRATIVE: CASE EVENT DATE: 20160823
